FAERS Safety Report 8542052-3 (Version None)
Quarter: 2012Q3

REPORT INFORMATION
  Report Type: 
  Country: None (occurrence: None)
  Receive Date: 20120726
  Receipt Date: 20111003
  Transmission Date: 20120928
  Serious: No
  Sender: FDA-Public Use
  Company Number: US-ASTRAZENECA-2011SE59093

PATIENT
  Age: 46 Year
  Sex: Female

DRUGS (2)
  1. SEROQUEL [Suspect]
     Indication: BIPOLAR DISORDER
     Route: 048
  2. SEROQUEL [Suspect]
     Dosage: 600 MG AT NIGHT AND 100 MG TWO TIMES A DAY
     Route: 048
     Dates: start: 20090101

REACTIONS (2)
  - TYPE 2 DIABETES MELLITUS [None]
  - HYPOACUSIS [None]
